FAERS Safety Report 16832983 (Version 4)
Quarter: 2020Q1

REPORT INFORMATION
  Report Type: Spontaneous
  Country: JP (occurrence: JP)
  Receive Date: 20190920
  Receipt Date: 20200323
  Transmission Date: 20200409
  Serious: Yes (Death, Hospitalization, Other)
  Sender: FDA-Public Use
  Company Number: JP-KYOWAKIRIN-2019AKK014709

PATIENT

DRUGS (416)
  1. FEBURIC [Concomitant]
     Active Substance: FEBUXOSTAT
     Dosage: 40 MG, QD
     Route: 048
     Dates: start: 20160428, end: 20160503
  2. ISOTONIC SODIUM CHLORIDE SOLUTION [Concomitant]
     Active Substance: SODIUM CHLORIDE
     Dosage: 20 ML, QD
     Route: 065
     Dates: start: 20160429, end: 20160429
  3. ISOTONIC SODIUM CHLORIDE SOLUTION [Concomitant]
     Active Substance: SODIUM CHLORIDE
     Dosage: 20 ML, BID
     Route: 065
     Dates: start: 20160502, end: 20160502
  4. ISOTONIC SODIUM CHLORIDE SOLUTION [Concomitant]
     Active Substance: SODIUM CHLORIDE
     Dosage: 100 ML, BID
     Route: 065
     Dates: start: 20160513, end: 20160513
  5. SAXIZON [Concomitant]
     Active Substance: HYDROCORTISONE SODIUM SUCCINATE
     Dosage: 100 MG
     Route: 065
     Dates: start: 20160427, end: 20160427
  6. SAXIZON [Concomitant]
     Active Substance: HYDROCORTISONE SODIUM SUCCINATE
     Dosage: 100 MG, QD
     Route: 065
     Dates: start: 20160605, end: 20160605
  7. SAXIZON [Concomitant]
     Active Substance: HYDROCORTISONE SODIUM SUCCINATE
     Dosage: 100 MG, QD
     Route: 065
     Dates: start: 20160625, end: 20160629
  8. SAXIZON [Concomitant]
     Active Substance: HYDROCORTISONE SODIUM SUCCINATE
     Dosage: 100 MG, 1X/WEEK
     Route: 065
     Dates: start: 20160906, end: 20160913
  9. SOLDEM 1 [Concomitant]
     Active Substance: DEXTROSE\SODIUM CHLORIDE\SODIUM LACTATE
     Dosage: 1500 ML, QD
     Route: 065
     Dates: start: 20160606, end: 20160613
  10. SOLDEM 1 [Concomitant]
     Active Substance: DEXTROSE\SODIUM CHLORIDE\SODIUM LACTATE
     Dosage: 500 ML, QD
     Route: 065
     Dates: start: 20160824, end: 20160829
  11. HEPARIN NA LOCK [Concomitant]
     Active Substance: HEPARIN SODIUM
     Dosage: 10 ML, QD
     Route: 065
     Dates: start: 20160427, end: 20160429
  12. HEPARIN NA LOCK [Concomitant]
     Active Substance: HEPARIN SODIUM
     Dosage: 10 ML, QID
     Route: 065
     Dates: start: 20160528, end: 20160528
  13. LEVOFLOXACIN HEMIHYDRATE [Concomitant]
     Active Substance: LEVOFLOXACIN
     Dosage: 500 MG, BID
     Route: 048
     Dates: start: 20160503, end: 20160503
  14. SOL-MELCORT [Concomitant]
     Active Substance: METHYLPREDNISOLONE SODIUM SUCCINATE
     Dosage: 125 MG, QD
     Route: 065
     Dates: start: 20160711, end: 20160715
  15. SOL-MELCORT [Concomitant]
     Active Substance: METHYLPREDNISOLONE SODIUM SUCCINATE
     Dosage: UNK, BID
     Route: 065
     Dates: start: 20160904, end: 20160904
  16. WHITE PETROLATUM [Concomitant]
     Active Substance: PETROLATUM
     Dosage: 50 G
     Route: 061
     Dates: start: 20160713, end: 20160713
  17. SOLDEM 3A [Concomitant]
     Active Substance: CARBOHYDRATES\POTASSIUM CHLORIDE\SODIUM CHLORIDE\SODIUM LACTATE
     Dosage: 500 ML, QD
     Route: 065
     Dates: start: 20160506, end: 20160506
  18. SOLDEM 3A [Concomitant]
     Active Substance: CARBOHYDRATES\POTASSIUM CHLORIDE\SODIUM CHLORIDE\SODIUM LACTATE
     Dosage: 1000 ML, QD
     Route: 065
     Dates: start: 20160731, end: 20160806
  19. GRANISETRON [Concomitant]
     Active Substance: GRANISETRON
     Dosage: 3 MG, 1X/WEEK
     Route: 065
     Dates: start: 20160506, end: 20160513
  20. FILGRASTIM BS [FILGRASTIM BIOSIMILAR 1] [Concomitant]
     Dosage: 75 UG, QD
     Route: 065
     Dates: start: 20160514, end: 20160529
  21. AZUNOL GARGLE LIQUID [Concomitant]
     Dosage: UNK
     Dates: start: 20160519, end: 20160519
  22. BFLUID [Concomitant]
     Active Substance: AMINO ACIDS\DEXTROSE\ELECTROLYTES NOS\VITAMINS
     Dosage: 1500 ML
     Route: 065
     Dates: start: 20160614, end: 20160620
  23. VALTREX [Concomitant]
     Active Substance: VALACYCLOVIR HYDROCHLORIDE
     Dosage: 500 MG, BID
     Route: 048
     Dates: start: 20160605, end: 20160622
  24. DISTILLED WATER [WATER FOR INJECTION] [Concomitant]
     Dosage: 20 ML, QD
     Route: 065
     Dates: start: 20160721, end: 20160723
  25. DISTILLED WATER [WATER FOR INJECTION] [Concomitant]
     Dosage: UNK UNK, QD
     Route: 065
     Dates: start: 20160908, end: 20160909
  26. POLARAMINE [Concomitant]
     Active Substance: DEXCHLORPHENIRAMINE MALEATE
     Dosage: 5 MG, QD
     Route: 065
     Dates: start: 20160610, end: 20160610
  27. POLARAMINE [Concomitant]
     Active Substance: DEXCHLORPHENIRAMINE MALEATE
     Dosage: 5 MG, QD
     Route: 065
     Dates: start: 20160620, end: 20160620
  28. MEROPENEM [MEROPENEM TRIHYDRATE] [Concomitant]
     Active Substance: MEROPENEM
     Dosage: 1000 MG, TID
     Route: 065
     Dates: start: 20160616, end: 20160627
  29. LASIX [Concomitant]
     Active Substance: FUROSEMIDE
     Dosage: 10 MG, QD
     Route: 065
     Dates: start: 20160614, end: 20160616
  30. LASIX [Concomitant]
     Active Substance: FUROSEMIDE
     Dosage: UNK UNK, QD
     Route: 065
     Dates: start: 20160619, end: 20160708
  31. LASIX [Concomitant]
     Active Substance: FUROSEMIDE
     Dosage: 40 MG, QD
     Route: 065
     Dates: start: 20160719, end: 20160719
  32. LASIX [Concomitant]
     Active Substance: FUROSEMIDE
     Dosage: 20 MG, QD
     Route: 065
     Dates: start: 20160723, end: 20160723
  33. LOPERAMIDE HYDROCHLORIDE. [Concomitant]
     Active Substance: LOPERAMIDE HYDROCHLORIDE
     Dosage: 1 MG, QD
     Route: 048
     Dates: start: 20160617, end: 20160617
  34. OMEPRAZOLE. [Concomitant]
     Active Substance: OMEPRAZOLE
     Dosage: 20 MG, QID
     Route: 065
     Dates: start: 20160629, end: 20160630
  35. NEUTROGIN [Concomitant]
     Active Substance: LENOGRASTIM
     Dosage: 250 UG, BID
     Route: 065
     Dates: start: 20160819, end: 20160819
  36. NEUTROGIN [Concomitant]
     Active Substance: LENOGRASTIM
     Dosage: 250 UG, QD
     Route: 065
     Dates: start: 20160912, end: 20160912
  37. ELNEOPA NO.1 [Concomitant]
     Active Substance: AMINO ACIDS\DEXTROSE\ELECTROLYTES NOS\MINERALS\VITAMINS
     Dosage: 2000 ML, QD
     Route: 065
     Dates: start: 20160707, end: 20160710
  38. ACELIO [Concomitant]
     Active Substance: ACETAMINOPHEN
     Dosage: 500 MG, QD
     Route: 065
     Dates: start: 20160819, end: 20160819
  39. FUNGUARD [Concomitant]
     Active Substance: MICAFUNGIN SODIUM
     Dosage: 150 MG, BID
     Route: 065
     Dates: start: 20160628, end: 20160630
  40. HUMACART R [Concomitant]
     Active Substance: INSULIN HUMAN
     Dosage: UNK, QD
     Route: 065
     Dates: start: 20160907, end: 20160918
  41. VFEND [Concomitant]
     Active Substance: VORICONAZOLE
     Dosage: 200 MG, QD
     Route: 065
     Dates: start: 20160628, end: 20160628
  42. HIRUDOID [Concomitant]
     Active Substance: GLYCOSAMINOGLYCANS
     Dosage: UNK
     Route: 061
     Dates: start: 20160630, end: 20160630
  43. RESTAMIN KOWA [Concomitant]
     Dosage: 30 G
     Dates: start: 20160712, end: 20160712
  44. NOVORAPID [Concomitant]
     Active Substance: INSULIN ASPART
     Dosage: UNK UNK, TID
     Route: 065
     Dates: start: 20160709, end: 20160709
  45. HEPAFLUSH [Concomitant]
     Active Substance: HEPARIN SODIUM
     Dosage: 10 ML, BID
     Route: 065
     Dates: start: 20160817, end: 20160817
  46. LOCOID [Concomitant]
     Active Substance: HYDROCORTISONE BUTYRATE
     Dosage: 3 G
     Route: 061
     Dates: start: 20160724, end: 20160724
  47. HYALEIN [Concomitant]
     Active Substance: HYALURONATE SODIUM
     Dosage: UNK, QID
     Route: 047
     Dates: start: 20160821, end: 20160821
  48. ADONA [CARBAZOCHROME SODIUM SULFONATE] [Concomitant]
     Active Substance: CARBAZOCHROME SODIUM SULFONATE
     Dosage: 100 MG, BID
     Route: 065
     Dates: start: 20160728, end: 20160728
  49. ADONA [CARBAZOCHROME SODIUM SULFONATE] [Concomitant]
     Active Substance: CARBAZOCHROME SODIUM SULFONATE
     Dosage: 100 MG, BID
     Route: 065
     Dates: start: 20160906, end: 20160906
  50. SOSEGON [PENTAZOCINE] [Concomitant]
     Active Substance: PENTAZOCINE
     Dosage: 7.5 MG, QD
     Route: 065
     Dates: start: 20160826, end: 20160826
  51. DENOSINE [GANCICLOVIR] [Concomitant]
     Active Substance: GANCICLOVIR
     Dosage: 65 MG, QD
     Route: 065
     Dates: start: 20160810, end: 20160816
  52. NICARDIPINE HYDROCHLORIDE. [Concomitant]
     Active Substance: NICARDIPINE HYDROCHLORIDE
     Dosage: 50 MG, QD
     Route: 065
     Dates: start: 20160831, end: 20160901
  53. HICALIQ [Concomitant]
     Active Substance: CALCIUM GLUCONATE\DEXTROSE\MAGNESIUM SULFATE\POTASSIUM ACETATE\POTASSIUM PHOSPHATE, DIBASIC\ZINC SULFATE
     Dosage: 500 ML, QD
     Route: 065
     Dates: start: 20160808, end: 20160810
  54. PRODIF [Concomitant]
     Active Substance: FOSFLUCONAZOLE
     Dosage: 100 MG, QD
     Route: 065
     Dates: start: 20160801, end: 20160905
  55. FINIBAX [Concomitant]
     Active Substance: DORIPENEM MONOHYDRATE
     Dosage: 250 MG, BID
     Route: 065
     Dates: start: 20160814, end: 20160918
  56. TEICOPLANIN [Concomitant]
     Active Substance: TEICOPLANIN
     Dosage: 400 MG, QD
     Route: 065
     Dates: start: 20160920, end: 20160921
  57. AMBISOME [Concomitant]
     Active Substance: AMPHOTERICIN B
     Dosage: 130 MG, QD
     Route: 065
     Dates: start: 20160913, end: 20160919
  58. NORADRENALINE [NOREPINEPHRINE] [Concomitant]
     Active Substance: NOREPINEPHRINE
     Dosage: 2 MG, TID
     Route: 065
     Dates: start: 20160919, end: 20160919
  59. FULCALIQ [Concomitant]
     Active Substance: AMINO ACIDS\CARBOHYDRATES\ELECTROLYTES NOS\VITAMINS
     Dosage: 1003 ML, QD
     Route: 065
     Dates: start: 20160921, end: 20160921
  60. FENTANYL. [Concomitant]
     Active Substance: FENTANYL
     Dosage: 20 MG, BID
     Route: 065
     Dates: start: 20160919, end: 20160920
  61. SODIUM CHLORIDE. [Concomitant]
     Active Substance: SODIUM CHLORIDE
     Dosage: 20 ML, QD
     Route: 065
     Dates: start: 20160808, end: 20160810
  62. POLARAMINE [Concomitant]
     Active Substance: DEXCHLORPHENIRAMINE MALEATE
     Dosage: 2 MG, QD
     Route: 048
     Dates: start: 20160427, end: 20160503
  63. ISOTONIC SODIUM CHLORIDE SOLUTION [Concomitant]
     Active Substance: SODIUM CHLORIDE
     Dosage: UNK UNK, BID
     Route: 065
     Dates: start: 20160506, end: 20160506
  64. SAXIZON [Concomitant]
     Active Substance: HYDROCORTISONE SODIUM SUCCINATE
     Dosage: 100 MG, QD
     Route: 065
     Dates: start: 20160710, end: 20160710
  65. SAXIZON [Concomitant]
     Active Substance: HYDROCORTISONE SODIUM SUCCINATE
     Dosage: 100 MG, QD
     Route: 065
     Dates: start: 20160721, end: 20160722
  66. SAXIZON [Concomitant]
     Active Substance: HYDROCORTISONE SODIUM SUCCINATE
     Dosage: 100 MG, QD
     Route: 065
     Dates: start: 20160803, end: 20160804
  67. SAXIZON [Concomitant]
     Active Substance: HYDROCORTISONE SODIUM SUCCINATE
     Dosage: 100 MG, QD
     Route: 065
     Dates: start: 20160816, end: 20160816
  68. SAXIZON [Concomitant]
     Active Substance: HYDROCORTISONE SODIUM SUCCINATE
     Dosage: 100 MG, QD
     Route: 065
     Dates: start: 20160825, end: 20160825
  69. RASURITEK [Concomitant]
     Active Substance: RASBURICASE
     Dosage: 7.5 MG, QD
     Route: 065
     Dates: start: 20160427, end: 20160427
  70. HEPARIN NA LOCK [Concomitant]
     Active Substance: HEPARIN SODIUM
     Dosage: 10 ML, QD
     Route: 065
     Dates: start: 20160424, end: 20160424
  71. HEPARIN NA LOCK [Concomitant]
     Active Substance: HEPARIN SODIUM
     Dosage: 10 ML, TID
     Route: 065
     Dates: start: 20160503, end: 20160512
  72. HEPARIN NA LOCK [Concomitant]
     Active Substance: HEPARIN SODIUM
     Dosage: 10 ML, QID
     Route: 065
     Dates: start: 20160525, end: 20160525
  73. HEPARIN NA LOCK [Concomitant]
     Active Substance: HEPARIN SODIUM
     Dosage: 10 ML, TID
     Route: 065
     Dates: start: 20160606, end: 20160614
  74. HEPARIN NA LOCK [Concomitant]
     Active Substance: HEPARIN SODIUM
     Dosage: 10 ML, TID
     Route: 065
     Dates: start: 20160617, end: 20160627
  75. HEPARIN NA LOCK [Concomitant]
     Active Substance: HEPARIN SODIUM
     Dosage: 10 ML, QD
     Route: 065
     Dates: start: 20160810, end: 20160810
  76. SOL-MELCORT [Concomitant]
     Active Substance: METHYLPREDNISOLONE SODIUM SUCCINATE
     Dosage: UNK
     Route: 065
     Dates: start: 20160708, end: 20160710
  77. SOL-MELCORT [Concomitant]
     Active Substance: METHYLPREDNISOLONE SODIUM SUCCINATE
     Dosage: 80 MG, QD
     Route: 065
     Dates: start: 20160731, end: 20160801
  78. GRANISETRON [Concomitant]
     Active Substance: GRANISETRON
     Dosage: 3 MG, BID
     Route: 065
     Dates: start: 20160607, end: 20160611
  79. VFEND [Concomitant]
     Active Substance: VORICONAZOLE
     Dosage: 400 MG, BID
     Route: 048
     Dates: start: 20160519, end: 20160622
  80. AZUNOL GARGLE LIQUID [Concomitant]
     Dosage: UNK
     Dates: start: 20160607, end: 20160607
  81. AZUNOL GARGLE LIQUID [Concomitant]
     Dosage: UNK
     Dates: start: 20160615, end: 20160615
  82. BFLUID [Concomitant]
     Active Substance: AMINO ACIDS\DEXTROSE\ELECTROLYTES NOS\VITAMINS
     Dosage: 1000 ML, QD
     Route: 065
     Dates: start: 20160519, end: 20160522
  83. DISTILLED WATER [WATER FOR INJECTION] [Concomitant]
     Dosage: 20 ML, QD
     Route: 065
     Dates: start: 20160706, end: 20160706
  84. DISTILLED WATER [WATER FOR INJECTION] [Concomitant]
     Dosage: UNK UNK, QD
     Route: 065
     Dates: start: 20160714, end: 20160715
  85. HAPTOGLOBIN [Concomitant]
     Dosage: UNK, TID
     Route: 065
     Dates: start: 20160613, end: 20160613
  86. POLARAMINE [Concomitant]
     Active Substance: DEXCHLORPHENIRAMINE MALEATE
     Dosage: UNK UNK, QD
     Route: 065
     Dates: start: 20160721, end: 20160722
  87. POLARAMINE [Concomitant]
     Active Substance: DEXCHLORPHENIRAMINE MALEATE
     Dosage: UNK UNK, QD
     Route: 065
     Dates: start: 20160812, end: 20160910
  88. LASIX [Concomitant]
     Active Substance: FUROSEMIDE
     Dosage: 20 MG, BID
     Route: 065
     Dates: start: 20160808, end: 20160808
  89. LASIX [Concomitant]
     Active Substance: FUROSEMIDE
     Dosage: 10 MG, QD
     Route: 065
     Dates: start: 20160905, end: 20160905
  90. MAGNESIUM SULFATE. [Concomitant]
     Active Substance: MAGNESIUM SULFATE
     Dosage: 20 ML, QD
     Route: 065
     Dates: start: 20160630, end: 20160630
  91. MAGNESIUM SULFATE. [Concomitant]
     Active Substance: MAGNESIUM SULFATE
     Dosage: 20 ML, QD
     Route: 065
     Dates: start: 20160817, end: 20160821
  92. NEUTROGIN [Concomitant]
     Active Substance: LENOGRASTIM
     Dosage: 250 UG, QD
     Route: 065
     Dates: start: 20160901, end: 20160902
  93. NEUTROGIN [Concomitant]
     Active Substance: LENOGRASTIM
     Dosage: 250 UG, QD
     Route: 065
     Dates: start: 20160914, end: 20160921
  94. VANCOMYCIN [Concomitant]
     Active Substance: VANCOMYCIN
     Dosage: 250 MG, QD
     Route: 065
     Dates: start: 20160622, end: 20160626
  95. ELNEOPA NO.1 [Concomitant]
     Active Substance: AMINO ACIDS\DEXTROSE\ELECTROLYTES NOS\MINERALS\VITAMINS
     Dosage: 1000 ML, QD
     Route: 065
     Dates: start: 20160621, end: 20160628
  96. ACELIO [Concomitant]
     Active Substance: ACETAMINOPHEN
     Dosage: 500 MG, TID
     Route: 065
     Dates: start: 20160623, end: 20160623
  97. FUNGUARD [Concomitant]
     Active Substance: MICAFUNGIN SODIUM
     Dosage: 150 MG, QD
     Route: 065
     Dates: start: 20160701, end: 20160731
  98. FULCALIQ [Concomitant]
     Active Substance: AMINO ACIDS\CARBOHYDRATES\ELECTROLYTES NOS\VITAMINS
     Dosage: 903 ML, QD
     Route: 065
     Dates: start: 20160628, end: 20160701
  99. FOSCAVIR [Concomitant]
     Active Substance: FOSCARNET SODIUM
     Dosage: 4.8 G, QD
     Route: 065
     Dates: start: 20160701, end: 20160703
  100. THYMOGLOBULINE [Concomitant]
     Active Substance: LAPINE T-LYMPHOCYTE IMMUNE GLOBULIN
     Dosage: 14 MG, QD
     Route: 065
     Dates: start: 20160702, end: 20160702
  101. THYMOGLOBULINE [Concomitant]
     Active Substance: LAPINE T-LYMPHOCYTE IMMUNE GLOBULIN
     Dosage: 55 MG, QD
     Route: 065
     Dates: start: 20160710, end: 20160710
  102. MYSER [DIFLUPREDNATE] [Concomitant]
     Dosage: 10 G
     Route: 061
     Dates: start: 20160808, end: 20160808
  103. REMICADE [Concomitant]
     Active Substance: INFLIXIMAB
     Dosage: 250 MG, 1X/WEEK
     Route: 065
     Dates: start: 20160723, end: 20160819
  104. HEPARINOID [Concomitant]
     Active Substance: CHONDROITIN SULFATE (BOVINE)
     Dosage: UNK
     Route: 061
     Dates: start: 20160817, end: 20160817
  105. DENOSINE [GANCICLOVIR] [Concomitant]
     Active Substance: GANCICLOVIR
     Dosage: 130 MG, QD
     Route: 065
     Dates: start: 20160817, end: 20160831
  106. NICARDIPINE HYDROCHLORIDE. [Concomitant]
     Active Substance: NICARDIPINE HYDROCHLORIDE
     Dosage: 50 MG, QD
     Route: 065
     Dates: start: 20160903, end: 20160920
  107. NEOAMIYU [Concomitant]
     Active Substance: AMINO ACIDS, SOURCE UNSPECIFIED
     Dosage: 200 ML, QD
     Route: 065
     Dates: start: 20160808, end: 20160810
  108. HICALIQ [Concomitant]
     Active Substance: CALCIUM GLUCONATE\DEXTROSE\MAGNESIUM SULFATE\POTASSIUM ACETATE\POTASSIUM PHOSPHATE, DIBASIC\ZINC SULFATE
     Dosage: 500 ML, QD
     Route: 065
     Dates: start: 20160921, end: 20160921
  109. POLYGLOBIN [Concomitant]
     Active Substance: HUMAN IMMUNOGLOBULIN G
     Dosage: 5000 MG, QD
     Route: 065
     Dates: start: 20160728, end: 20160730
  110. INTRALIPOS [Concomitant]
     Active Substance: SOYBEAN OIL
     Dosage: 50 ML
     Route: 065
     Dates: start: 20160824, end: 20160920
  111. MUCOSTA [Concomitant]
     Active Substance: REBAMIPIDE
     Dosage: UNK, QID
     Route: 047
     Dates: start: 20160826, end: 20160826
  112. MUCOSTA [Concomitant]
     Active Substance: REBAMIPIDE
     Dosage: UNK, QOD
     Route: 047
     Dates: start: 20160916, end: 20160918
  113. MUCOSTA [Concomitant]
     Active Substance: REBAMIPIDE
     Dosage: UNK, QOD
     Route: 047
     Dates: start: 20160921, end: 20160921
  114. ONOACT [Concomitant]
     Active Substance: LANDIOLOL HYDROCHLORIDE
     Dosage: 250 MG, QD
     Route: 065
     Dates: start: 20160919, end: 20160919
  115. ONOACT [Concomitant]
     Active Substance: LANDIOLOL HYDROCHLORIDE
     Dosage: 250 MG, QID
     Route: 065
     Dates: start: 20160920, end: 20160920
  116. ONOACT [Concomitant]
     Active Substance: LANDIOLOL HYDROCHLORIDE
     Dosage: 250 MG, QD
     Route: 065
     Dates: start: 20160921, end: 20160922
  117. PRECEDEX [Concomitant]
     Active Substance: DEXMEDETOMIDINE HYDROCHLORIDE
     Dosage: 200 UG, QID
     Route: 065
     Dates: start: 20160920, end: 20160920
  118. PRECEDEX [Concomitant]
     Active Substance: DEXMEDETOMIDINE HYDROCHLORIDE
     Dosage: 200 UG, TID
     Route: 065
     Dates: start: 20160921, end: 20160921
  119. HEPARIN NA LOCK [Concomitant]
     Active Substance: HEPARIN SODIUM
     Dosage: 30 ML, QD
     Route: 065
     Dates: start: 20160919, end: 20160919
  120. SOL-MELCORT [Concomitant]
     Active Substance: METHYLPREDNISOLONE SODIUM SUCCINATE
     Dosage: 125 MG, BID
     Route: 065
     Dates: start: 20160629, end: 20160701
  121. SOL-MELCORT [Concomitant]
     Active Substance: METHYLPREDNISOLONE SODIUM SUCCINATE
     Dosage: 1000 MG, QD
     Route: 065
     Dates: start: 20160905, end: 20160906
  122. SOL-MELCORT [Concomitant]
     Active Substance: METHYLPREDNISOLONE SODIUM SUCCINATE
     Dosage: 125 MG, QD
     Route: 065
     Dates: start: 20160907, end: 20160916
  123. SOL-MELCORT [Concomitant]
     Active Substance: METHYLPREDNISOLONE SODIUM SUCCINATE
     Dosage: 500 MG, QD
     Route: 065
     Dates: start: 20160918, end: 20160919
  124. PREDONINE [Concomitant]
     Active Substance: PREDNISOLONE
     Dosage: 120 MG, 1X/WEEK
     Route: 048
     Dates: start: 20160505, end: 20160512
  125. NEXIUM [Concomitant]
     Active Substance: ESOMEPRAZOLE MAGNESIUM
     Dosage: 20 MG, QD
     Route: 048
     Dates: start: 20160510, end: 20160622
  126. DAIPHEN [Concomitant]
     Active Substance: SULFAMETHOXAZOLE\TRIMETHOPRIM
     Dosage: 0.5 DF, QD
     Route: 048
     Dates: start: 20160914
  127. SOLDEM 3A [Concomitant]
     Active Substance: CARBOHYDRATES\POTASSIUM CHLORIDE\SODIUM CHLORIDE\SODIUM LACTATE
     Dosage: 1000 ML, QD
     Route: 065
     Dates: start: 20160906, end: 20160920
  128. DISTILLED WATER [WATER FOR INJECTION] [Concomitant]
     Dosage: 2.5 ML, QD
     Route: 065
     Dates: start: 20160607, end: 20160611
  129. DISTILLED WATER [WATER FOR INJECTION] [Concomitant]
     Dosage: UNK UNK, QD
     Route: 065
     Dates: start: 20160620, end: 20160628
  130. POLARAMINE [Concomitant]
     Active Substance: DEXCHLORPHENIRAMINE MALEATE
     Dosage: UNK UNK, QD
     Route: 065
     Dates: start: 20160918, end: 20160920
  131. METHOTREXATE. [Concomitant]
     Active Substance: METHOTREXATE
     Dosage: 15 MG, QD
     Route: 065
     Dates: start: 20160614, end: 20160614
  132. MEROPENEM [MEROPENEM TRIHYDRATE] [Concomitant]
     Active Substance: MEROPENEM
     Dosage: 1000 MG, QID
     Route: 065
     Dates: start: 20160628, end: 20160628
  133. MEROPENEM [MEROPENEM TRIHYDRATE] [Concomitant]
     Active Substance: MEROPENEM
     Dosage: 1000 MG, TID
     Route: 065
     Dates: start: 20160702, end: 20160726
  134. LASIX [Concomitant]
     Active Substance: FUROSEMIDE
     Dosage: 20 MG, QD
     Route: 065
     Dates: start: 20160729, end: 20160729
  135. MAGNESIUM SULFATE. [Concomitant]
     Active Substance: MAGNESIUM SULFATE
     Dosage: 20 ML, QD
     Route: 065
     Dates: start: 20160706, end: 20160710
  136. MAGNESIUM SULFATE. [Concomitant]
     Active Substance: MAGNESIUM SULFATE
     Dosage: 20 ML, QD
     Route: 065
     Dates: start: 20160721, end: 20160727
  137. OMEPRAZOLE. [Concomitant]
     Active Substance: OMEPRAZOLE
     Dosage: 20 MG, BID
     Route: 065
     Dates: start: 20160921, end: 20160921
  138. VICCLOX [ACICLOVIR] [Concomitant]
     Active Substance: ACYCLOVIR
     Dosage: 250 MG, TID
     Route: 065
     Dates: start: 20160620, end: 20160620
  139. VICCLOX [ACICLOVIR] [Concomitant]
     Active Substance: ACYCLOVIR
     Dosage: 250 MG, QD
     Route: 065
     Dates: start: 20160731, end: 20160809
  140. ELNEOPA NO.1 [Concomitant]
     Active Substance: AMINO ACIDS\DEXTROSE\ELECTROLYTES NOS\MINERALS\VITAMINS
     Dosage: 1000 ML, QD
     Route: 065
     Dates: start: 20160711, end: 20160716
  141. ACELIO [Concomitant]
     Active Substance: ACETAMINOPHEN
     Dosage: 1000 MG, QD
     Route: 065
     Dates: start: 20160620, end: 20160620
  142. ALBUMIN [Concomitant]
     Active Substance: ALBUMIN HUMAN
     Dosage: 100 ML, QD
     Route: 065
     Dates: start: 20160714, end: 20160714
  143. KCL [Concomitant]
     Active Substance: POTASSIUM CHLORIDE
     Dosage: 30 ML, QD
     Route: 065
     Dates: start: 20160817, end: 20160821
  144. HANP [Concomitant]
     Active Substance: CARPERITIDE
     Dosage: 2000 UG, QD
     Route: 065
     Dates: start: 20160623, end: 20160627
  145. HUMACART R [Concomitant]
     Active Substance: INSULIN HUMAN
     Dosage: UNK UNK, TID
     Route: 065
     Dates: start: 20160628, end: 20160628
  146. HUMACART R [Concomitant]
     Active Substance: INSULIN HUMAN
     Dosage: UNK, BID
     Route: 065
     Dates: start: 20160906, end: 20160906
  147. HUMACART R [Concomitant]
     Active Substance: INSULIN HUMAN
     Dosage: UNK, TID
     Route: 065
     Dates: start: 20160920, end: 20160920
  148. THYMOGLOBULINE [Concomitant]
     Active Substance: LAPINE T-LYMPHOCYTE IMMUNE GLOBULIN
     Dosage: 55 MG, QD
     Route: 065
     Dates: start: 20160825, end: 20160825
  149. THYMOGLOBULINE [Concomitant]
     Active Substance: LAPINE T-LYMPHOCYTE IMMUNE GLOBULIN
     Dosage: 110 MG, QD
     Route: 065
     Dates: start: 20160904, end: 20160904
  150. ZINC OXIDE. [Concomitant]
     Active Substance: ZINC OXIDE
     Dosage: 50 G
     Route: 061
     Dates: start: 20160713, end: 20160713
  151. MOVIPREP [Concomitant]
     Active Substance: ASCORBIC ACID\POLYETHYLENE GLYCOL 3350\POTASSIUM CHLORIDE\SODIUM ASCORBATE\SODIUM CHLORIDE\SODIUM SULFATE
     Dosage: UNK
     Route: 048
     Dates: start: 20160719, end: 20160719
  152. HEPAFLUSH [Concomitant]
     Active Substance: HEPARIN SODIUM
     Dosage: 10 ML, QD
     Route: 065
     Dates: start: 20160712, end: 20160712
  153. HEPAFLUSH [Concomitant]
     Active Substance: HEPARIN SODIUM
     Dosage: 10 ML, BID
     Route: 065
     Dates: start: 20160915, end: 20160920
  154. MYSER [DIFLUPREDNATE] [Concomitant]
     Dosage: 5 G
     Route: 061
     Dates: start: 20160726, end: 20160726
  155. MAXIPIME [Concomitant]
     Active Substance: CEFEPIME HYDROCHLORIDE
     Dosage: 500 MG, QD
     Route: 065
     Dates: start: 20160809, end: 20160814
  156. REMICADE [Concomitant]
     Active Substance: INFLIXIMAB
     Dosage: 250 MG, QD
     Route: 065
     Dates: start: 20160909, end: 20160909
  157. HYALEIN [Concomitant]
     Active Substance: HYALURONATE SODIUM
     Dosage: UNK
     Route: 047
     Dates: start: 20160730, end: 20160730
  158. DERMOVATE [Concomitant]
     Active Substance: CLOBETASOL
     Dosage: 10 G, QOD
     Route: 047
     Dates: start: 20160801, end: 20160803
  159. GATIFLO [Concomitant]
     Active Substance: GATIFLOXACIN
     Dosage: UNK
     Route: 047
     Dates: start: 20160802, end: 20160802
  160. TRANEXAMIC ACID. [Concomitant]
     Active Substance: TRANEXAMIC ACID
     Dosage: 1000 MG, QD
     Route: 065
     Dates: start: 20160814, end: 20160829
  161. NICARDIPINE HYDROCHLORIDE. [Concomitant]
     Active Substance: NICARDIPINE HYDROCHLORIDE
     Dosage: 50 MG, QD
     Route: 065
     Dates: start: 20160819, end: 20160829
  162. NICARDIPINE HYDROCHLORIDE. [Concomitant]
     Active Substance: NICARDIPINE HYDROCHLORIDE
     Dosage: 50 MG, BID
     Route: 065
     Dates: start: 20160830, end: 20160830
  163. RITUXAN [Concomitant]
     Active Substance: RITUXIMAB
     Dosage: 550 MG, 1X/WEEK
     Route: 065
     Dates: start: 20160801, end: 20160913
  164. CUBICIN [Concomitant]
     Active Substance: DAPTOMYCIN
     Dosage: 300 MG, QOD
     Route: 065
     Dates: start: 20160903, end: 20160911
  165. AMBISOME [Concomitant]
     Active Substance: AMPHOTERICIN B
     Dosage: 250 MG, BID
     Route: 065
     Dates: start: 20160920, end: 20160920
  166. SAXIZON [Concomitant]
     Active Substance: HYDROCORTISONE SODIUM SUCCINATE
     Dosage: 100 MG, QD
     Route: 065
     Dates: start: 20160505, end: 20160505
  167. SAXIZON [Concomitant]
     Active Substance: HYDROCORTISONE SODIUM SUCCINATE
     Dosage: 100 MG, QD
     Route: 065
     Dates: start: 20160613, end: 20160613
  168. SAXIZON [Concomitant]
     Active Substance: HYDROCORTISONE SODIUM SUCCINATE
     Dosage: 100 MG, QD
     Route: 065
     Dates: start: 20160801, end: 20160801
  169. SAXIZON [Concomitant]
     Active Substance: HYDROCORTISONE SODIUM SUCCINATE
     Dosage: 100 MG, QD
     Route: 065
     Dates: start: 20160818, end: 20160818
  170. SAXIZON [Concomitant]
     Active Substance: HYDROCORTISONE SODIUM SUCCINATE
     Dosage: 100 MG, QD
     Route: 065
     Dates: start: 20160823, end: 20160823
  171. SOLDEM 1 [Concomitant]
     Active Substance: DEXTROSE\SODIUM CHLORIDE\SODIUM LACTATE
     Dosage: 1500 ML, QD
     Route: 065
     Dates: start: 20160427, end: 20160427
  172. HEPARIN NA LOCK [Concomitant]
     Active Substance: HEPARIN SODIUM
     Dosage: 10 ML, TID
     Route: 065
     Dates: start: 20160526, end: 20160527
  173. HEPARIN NA LOCK [Concomitant]
     Active Substance: HEPARIN SODIUM
     Dosage: 20 ML, QD
     Route: 065
     Dates: start: 20160908, end: 20160908
  174. SOL-MELCORT [Concomitant]
     Active Substance: METHYLPREDNISOLONE SODIUM SUCCINATE
     Dosage: 110 MG, QD
     Route: 065
     Dates: start: 20160811, end: 20160903
  175. SOL-MELCORT [Concomitant]
     Active Substance: METHYLPREDNISOLONE SODIUM SUCCINATE
     Dosage: UNK
     Route: 065
     Dates: start: 20160917, end: 20160917
  176. WHITE PETROLATUM [Concomitant]
     Active Substance: PETROLATUM
     Dosage: 30 G
     Route: 061
     Dates: start: 20160511, end: 20160511
  177. FLUCONAZOLE. [Concomitant]
     Active Substance: FLUCONAZOLE
     Dosage: 200 MG, QD
     Route: 048
     Dates: start: 20160510, end: 20160518
  178. GLUCOSE [Concomitant]
     Active Substance: DEXTROSE
     Dosage: 100 ML, QD
     Route: 065
     Dates: start: 20160702, end: 20160709
  179. AZUNOL GARGLE LIQUID [Concomitant]
     Dosage: UNK
     Dates: start: 20160618, end: 20160618
  180. AZUNOL GARGLE LIQUID [Concomitant]
     Dosage: UNK
     Dates: start: 20160630, end: 20160630
  181. URSODEOXYCHOLIC ACID [Concomitant]
     Active Substance: URSODIOL
     Dosage: 200 MG, TID
     Route: 048
     Dates: start: 20160907, end: 20160922
  182. EMEND [Concomitant]
     Active Substance: APREPITANT
     Dosage: UNK, QD
     Route: 048
     Dates: start: 20160609, end: 20160611
  183. POLARAMINE [Concomitant]
     Active Substance: DEXCHLORPHENIRAMINE MALEATE
     Dosage: 5 MG, QD
     Route: 065
     Dates: start: 20160713, end: 20160715
  184. POLARAMINE [Concomitant]
     Active Substance: DEXCHLORPHENIRAMINE MALEATE
     Dosage: UNK UNK, QD
     Route: 065
     Dates: start: 20160727, end: 20160810
  185. METHOTREXATE. [Concomitant]
     Active Substance: METHOTREXATE
     Dosage: 10 MG, EVERY 3 DAYS
     Route: 065
     Dates: start: 20160616, end: 20160619
  186. LASIX [Concomitant]
     Active Substance: FUROSEMIDE
     Dosage: 40 MG, QD
     Route: 065
     Dates: start: 20160710, end: 20160710
  187. PROGRAF [Concomitant]
     Active Substance: TACROLIMUS
     Dosage: UNK
     Route: 065
     Dates: start: 20160612, end: 20160802
  188. OMEPRAZOLE. [Concomitant]
     Active Substance: OMEPRAZOLE
     Dosage: 20 MG, BID
     Route: 065
     Dates: start: 20160702, end: 20160919
  189. VANCOMYCIN [Concomitant]
     Active Substance: VANCOMYCIN
     Dosage: 1000 MG, BID
     Route: 065
     Dates: start: 20160621, end: 20160626
  190. ACELIO [Concomitant]
     Active Substance: ACETAMINOPHEN
     Dosage: 500 MG, QD
     Route: 065
     Dates: start: 20160621, end: 20160621
  191. ACELIO [Concomitant]
     Active Substance: ACETAMINOPHEN
     Dosage: 1000 MG, QD
     Route: 065
     Dates: start: 20160814, end: 20160814
  192. ACELIO [Concomitant]
     Active Substance: ACETAMINOPHEN
     Dosage: 500 MG, QD
     Route: 065
     Dates: start: 20160918, end: 20160919
  193. ALBUMIN [Concomitant]
     Active Substance: ALBUMIN HUMAN
     Dosage: 100 ML, QD
     Route: 065
     Dates: start: 20160719, end: 20160719
  194. XYLOCAINE [Concomitant]
     Active Substance: LIDOCAINE HYDROCHLORIDE
     Dosage: 20 ML, QD
     Route: 065
     Dates: start: 20160628, end: 20160628
  195. XYLOCAINE [Concomitant]
     Active Substance: LIDOCAINE HYDROCHLORIDE
     Dosage: 20 ML, QD
     Route: 065
     Dates: start: 20160919, end: 20160919
  196. KCL [Concomitant]
     Active Substance: POTASSIUM CHLORIDE
     Dosage: 20 ML, QD
     Route: 065
     Dates: start: 20160730, end: 20160801
  197. FUNGUARD [Concomitant]
     Active Substance: MICAFUNGIN SODIUM
     Dosage: 150 MG, QD
     Route: 065
     Dates: start: 20160906, end: 20160913
  198. HANP [Concomitant]
     Active Substance: CARPERITIDE
     Dosage: 2000 UG, BID
     Route: 065
     Dates: start: 20160629, end: 20160701
  199. HUMACART R [Concomitant]
     Active Substance: INSULIN HUMAN
     Dosage: UNK, 6X/DAY
     Route: 065
     Dates: start: 20160921, end: 20160921
  200. VFEND [Concomitant]
     Active Substance: VORICONAZOLE
     Dosage: 200 MG, BID
     Route: 065
     Dates: start: 20160623, end: 20160627
  201. DIBASIC POTASSIUM PHOSPHATE [Concomitant]
     Active Substance: POTASSIUM PHOSPHATE, DIBASIC
     Dosage: 20 ML, QD
     Route: 065
     Dates: start: 20160816, end: 20160816
  202. THYMOGLOBULINE [Concomitant]
     Active Substance: LAPINE T-LYMPHOCYTE IMMUNE GLOBULIN
     Dosage: 55 MG, QD
     Route: 065
     Dates: start: 20160727, end: 20160728
  203. ZINC OXIDE. [Concomitant]
     Active Substance: ZINC OXIDE
     Dosage: 15 G, QOD
     Route: 061
     Dates: start: 20160801, end: 20160803
  204. MYSER [DIFLUPREDNATE] [Concomitant]
     Dosage: 10 G
     Route: 061
     Dates: start: 20160817, end: 20160817
  205. KENKETU GLOVENIN-I [Concomitant]
     Active Substance: HUMAN IMMUNOGLOBULIN G
     Dosage: 5000 MG
     Route: 065
     Dates: start: 20160720, end: 20160720
  206. MAXIPIME [Concomitant]
     Active Substance: CEFEPIME HYDROCHLORIDE
     Dosage: 1000 MG, QD
     Route: 065
     Dates: start: 20160727, end: 20160727
  207. MAXIPIME [Concomitant]
     Active Substance: CEFEPIME HYDROCHLORIDE
     Dosage: 1000 MG, QD
     Route: 065
     Dates: start: 20160808, end: 20160808
  208. HEPARINOID [Concomitant]
     Active Substance: CHONDROITIN SULFATE (BOVINE)
     Dosage: UNK
     Route: 061
     Dates: start: 20160824, end: 20160824
  209. SANDIMMUN [Concomitant]
     Active Substance: CYCLOSPORINE
     Dosage: UNK UNK, QD
     Route: 065
     Dates: start: 20160803, end: 20160808
  210. SOSEGON [PENTAZOCINE] [Concomitant]
     Active Substance: PENTAZOCINE
     Dosage: 7.5 MG, QD
     Route: 065
     Dates: start: 20160902, end: 20160902
  211. TRANEXAMIC ACID. [Concomitant]
     Active Substance: TRANEXAMIC ACID
     Dosage: 1000 MG, QD
     Route: 065
     Dates: start: 20160729, end: 20160809
  212. TRANEXAMIC ACID. [Concomitant]
     Active Substance: TRANEXAMIC ACID
     Dosage: 1000 MG, QD
     Route: 065
     Dates: start: 20160907, end: 20160920
  213. NICARDIPINE HYDROCHLORIDE. [Concomitant]
     Active Substance: NICARDIPINE HYDROCHLORIDE
     Dosage: 50 MG, QD
     Route: 065
     Dates: start: 20160805, end: 20160808
  214. NICARDIPINE HYDROCHLORIDE. [Concomitant]
     Active Substance: NICARDIPINE HYDROCHLORIDE
     Dosage: 50 MG, QD
     Route: 065
     Dates: start: 20160811, end: 20160815
  215. ELNEOPA NO.2 [Concomitant]
     Active Substance: AMINO ACIDS\DEXTROSE\ELECTROLYTES NOS\MINERALS\VITAMINS
     Dosage: 1500 ML, BID
     Route: 065
     Dates: start: 20160906, end: 20160906
  216. FINIBAX [Concomitant]
     Active Substance: DORIPENEM MONOHYDRATE
     Dosage: UNK, TID
     Route: 065
     Dates: start: 20160919, end: 20160919
  217. TERIBONE [Concomitant]
     Active Substance: TERIPARATIDE ACETATE
     Dosage: UNK UNK, 1X/WEEK
     Route: 065
     Dates: start: 20160909, end: 20160916
  218. NORADRENALINE [NOREPINEPHRINE] [Concomitant]
     Active Substance: NOREPINEPHRINE
     Dosage: 2 MG, QD
     Route: 065
     Dates: start: 20160922, end: 20160922
  219. PRECEDEX [Concomitant]
     Active Substance: DEXMEDETOMIDINE HYDROCHLORIDE
     Dosage: 200 UG, TID
     Route: 065
     Dates: start: 20160919, end: 20160919
  220. POTELIGEO [Suspect]
     Active Substance: MOGAMULIZUMAB-KPKC
     Indication: ADULT T-CELL LYMPHOMA/LEUKAEMIA
     Dosage: 54 MG, QD
     Route: 041
     Dates: start: 20160504, end: 20160504
  221. FEBURIC [Concomitant]
     Active Substance: FEBUXOSTAT
     Dosage: 80 MG, QD
     Route: 048
     Dates: start: 20160427, end: 20160427
  222. ISOTONIC SODIUM CHLORIDE SOLUTION [Concomitant]
     Active Substance: SODIUM CHLORIDE
     Dosage: 20 ML, QD
     Route: 065
     Dates: start: 20160427, end: 20160427
  223. SOLDEM 1 [Concomitant]
     Active Substance: DEXTROSE\SODIUM CHLORIDE\SODIUM LACTATE
     Dosage: 1500 ML, QD
     Route: 065
     Dates: start: 20160714, end: 20160729
  224. HEPARIN NA LOCK [Concomitant]
     Active Substance: HEPARIN SODIUM
     Dosage: 10 ML, TID
     Route: 065
     Dates: start: 20160515, end: 20160524
  225. HEPARIN NA LOCK [Concomitant]
     Active Substance: HEPARIN SODIUM
     Dosage: UNK, QID
     Route: 065
     Dates: start: 20160628, end: 20160701
  226. LEVOFLOXACIN HEMIHYDRATE [Concomitant]
     Active Substance: LEVOFLOXACIN
     Dosage: 500 MG, QD
     Route: 048
     Dates: start: 20160504, end: 20160615
  227. SOL-MELCORT [Concomitant]
     Active Substance: METHYLPREDNISOLONE SODIUM SUCCINATE
     Dosage: 125 MG, QD
     Route: 065
     Dates: start: 20160428, end: 20160428
  228. SOL-MELCORT [Concomitant]
     Active Substance: METHYLPREDNISOLONE SODIUM SUCCINATE
     Dosage: 125 MG, QD
     Route: 065
     Dates: start: 20160921, end: 20160921
  229. WHITE PETROLATUM [Concomitant]
     Active Substance: PETROLATUM
     Dosage: 100 G
     Route: 061
     Dates: start: 20160730, end: 20160730
  230. DISTILLED WATER [WATER FOR INJECTION] [Concomitant]
     Dosage: UNK UNK, QD
     Route: 065
     Dates: start: 20160728, end: 20160731
  231. DISTILLED WATER [WATER FOR INJECTION] [Concomitant]
     Dosage: UNK, QD
     Route: 065
     Dates: start: 20160913, end: 20160921
  232. POLARAMINE [Concomitant]
     Active Substance: DEXCHLORPHENIRAMINE MALEATE
     Dosage: 5 MG, QOD
     Route: 065
     Dates: start: 20160622, end: 20160626
  233. POLARAMINE [Concomitant]
     Active Substance: DEXCHLORPHENIRAMINE MALEATE
     Dosage: UNK UNK, QD
     Route: 065
     Dates: start: 20160628, end: 20160629
  234. POLARAMINE [Concomitant]
     Active Substance: DEXCHLORPHENIRAMINE MALEATE
     Dosage: UNK UNK, QD
     Route: 065
     Dates: start: 20160701, end: 20160702
  235. POLARAMINE [Concomitant]
     Active Substance: DEXCHLORPHENIRAMINE MALEATE
     Dosage: UNK UNK, QD
     Route: 065
     Dates: start: 20160912, end: 20160916
  236. MEROPENEM [MEROPENEM TRIHYDRATE] [Concomitant]
     Active Substance: MEROPENEM
     Dosage: 1000 MG, QID
     Route: 065
     Dates: start: 20160701, end: 20160701
  237. MEROPENEM [MEROPENEM TRIHYDRATE] [Concomitant]
     Active Substance: MEROPENEM
     Dosage: 1000 MG, QD
     Route: 065
     Dates: start: 20160727, end: 20160727
  238. LASIX [Concomitant]
     Active Substance: FUROSEMIDE
     Dosage: 10 MG, QD
     Route: 065
     Dates: start: 20160801, end: 20160801
  239. MAGNESIUM SULFATE. [Concomitant]
     Active Substance: MAGNESIUM SULFATE
     Dosage: 20 ML, QD
     Route: 065
     Dates: start: 20160615, end: 20160626
  240. LOPERAMIDE HYDROCHLORIDE. [Concomitant]
     Active Substance: LOPERAMIDE HYDROCHLORIDE
     Dosage: 1 MG, QD
     Route: 048
     Dates: start: 20160703, end: 20160703
  241. VANCOMYCIN [Concomitant]
     Active Substance: VANCOMYCIN
     Dosage: 1000 MG, QD
     Route: 065
     Dates: start: 20160620, end: 20160620
  242. VICCLOX [ACICLOVIR] [Concomitant]
     Active Substance: ACYCLOVIR
     Dosage: 250 MG, QD
     Route: 065
     Dates: start: 20160621, end: 20160626
  243. VICCLOX [ACICLOVIR] [Concomitant]
     Active Substance: ACYCLOVIR
     Dosage: 250 MG, QD
     Route: 065
     Dates: start: 20160901, end: 20160914
  244. HUMACART R [Concomitant]
     Active Substance: INSULIN HUMAN
     Dosage: UNK, QD
     Route: 065
     Dates: start: 20160630, end: 20160905
  245. THYMOGLOBULINE [Concomitant]
     Active Substance: LAPINE T-LYMPHOCYTE IMMUNE GLOBULIN
     Dosage: 110 MG, QD
     Route: 065
     Dates: start: 20160818, end: 20160818
  246. THYMOGLOBULINE [Concomitant]
     Active Substance: LAPINE T-LYMPHOCYTE IMMUNE GLOBULIN
     Dosage: 55 MG, QD
     Route: 065
     Dates: start: 20160915, end: 20160915
  247. MINERIC 5 [Concomitant]
     Dosage: 2 ML, QD
     Route: 065
     Dates: start: 20160628, end: 20160701
  248. NOVORAPID [Concomitant]
     Active Substance: INSULIN ASPART
     Dosage: UNK UNK, TID
     Route: 065
     Dates: start: 20160821, end: 20160821
  249. MORPHINE HYDROCHLORIDE TRIHYDRATE [Concomitant]
     Active Substance: MORPHINE HYDROCHLORIDE
     Dosage: 2 ML, QD
     Route: 065
     Dates: start: 20160711, end: 20160711
  250. SOLACET F [Concomitant]
     Active Substance: CALCIUM CHLORIDE\POTASSIUM CHLORIDE\SODIUM ACETATE\SODIUM CHLORIDE
     Dosage: 500 ML, QD
     Route: 065
     Dates: start: 20160826, end: 20160826
  251. MYSER [DIFLUPREDNATE] [Concomitant]
     Dosage: 3 G
     Route: 061
     Dates: start: 20160720, end: 20160720
  252. MYSER [DIFLUPREDNATE] [Concomitant]
     Dosage: 3 G
     Route: 061
     Dates: start: 20160724, end: 20160724
  253. MYSER [DIFLUPREDNATE] [Concomitant]
     Dosage: 10 G
     Route: 061
     Dates: start: 20160824, end: 20160824
  254. LOCOID [Concomitant]
     Active Substance: HYDROCORTISONE BUTYRATE
     Dosage: 5 G
     Route: 061
     Dates: start: 20160726, end: 20160726
  255. HYALEIN [Concomitant]
     Active Substance: HYALURONATE SODIUM
     Dosage: UNK, QID
     Route: 047
     Dates: start: 20160802, end: 20160802
  256. HEPARINOID [Concomitant]
     Active Substance: CHONDROITIN SULFATE (BOVINE)
     Dosage: UNK
     Route: 061
     Dates: start: 20160801, end: 20160803
  257. SOSEGON [PENTAZOCINE] [Concomitant]
     Active Substance: PENTAZOCINE
     Dosage: 7.5 MG, QD
     Route: 065
     Dates: start: 20160808, end: 20160808
  258. TRANEXAMIC ACID. [Concomitant]
     Active Substance: TRANEXAMIC ACID
     Dosage: 1000 MG, BID
     Route: 065
     Dates: start: 20160728, end: 20160728
  259. ELNEOPA NO.2 [Concomitant]
     Active Substance: AMINO ACIDS\DEXTROSE\ELECTROLYTES NOS\MINERALS\VITAMINS
     Dosage: 1500 ML, QD
     Route: 065
     Dates: start: 20160728, end: 20160807
  260. ELNEOPA NO.2 [Concomitant]
     Active Substance: AMINO ACIDS\DEXTROSE\ELECTROLYTES NOS\MINERALS\VITAMINS
     Dosage: 1500 ML, QD
     Route: 065
     Dates: start: 20160824, end: 20160905
  261. NEO MINOPHAGEN C [CYSTEINE HYDROCHLORIDE;GLYCINE;GLYCYRRHIZIC ACID, AM [Concomitant]
     Dosage: 60 ML
     Route: 065
     Dates: start: 20160814, end: 20160920
  262. FINIBAX [Concomitant]
     Active Substance: DORIPENEM MONOHYDRATE
     Dosage: 250 MG, BID
     Route: 065
     Dates: start: 20160921, end: 20160921
  263. MUCOSTA [Concomitant]
     Active Substance: REBAMIPIDE
     Dosage: UNK, QID
     Route: 047
     Dates: start: 20160901, end: 20160901
  264. AMBISOME [Concomitant]
     Active Substance: AMPHOTERICIN B
     Dosage: 250 MG, QD
     Route: 065
     Dates: start: 20160921, end: 20160921
  265. ISOTONIC SODIUM CHLORIDE SOLUTION [Concomitant]
     Active Substance: SODIUM CHLORIDE
     Dosage: 100 ML, QD
     Route: 065
     Dates: start: 20160428, end: 20160428
  266. SAXIZON [Concomitant]
     Active Substance: HYDROCORTISONE SODIUM SUCCINATE
     Dosage: 100 MG, QD
     Route: 065
     Dates: start: 20160702, end: 20160702
  267. SAXIZON [Concomitant]
     Active Substance: HYDROCORTISONE SODIUM SUCCINATE
     Dosage: 100 MG, QD
     Route: 065
     Dates: start: 20160830, end: 20160830
  268. SOLDEM 1 [Concomitant]
     Active Substance: DEXTROSE\SODIUM CHLORIDE\SODIUM LACTATE
     Dosage: 1000 ML, QD
     Route: 065
     Dates: start: 20160428, end: 20160428
  269. SOLDEM 1 [Concomitant]
     Active Substance: DEXTROSE\SODIUM CHLORIDE\SODIUM LACTATE
     Dosage: 1500 ML, QD
     Route: 065
     Dates: start: 20160807, end: 20160823
  270. HEPARIN NA LOCK [Concomitant]
     Active Substance: HEPARIN SODIUM
     Dosage: 30 ML, BID
     Route: 065
     Dates: start: 20160502, end: 20160502
  271. HEPARIN NA LOCK [Concomitant]
     Active Substance: HEPARIN SODIUM
     Dosage: UNK UNK, QD
     Route: 065
     Dates: start: 20160705, end: 20160710
  272. HEPARIN NA LOCK [Concomitant]
     Active Substance: HEPARIN SODIUM
     Dosage: UNK
     Route: 065
     Dates: start: 20160724, end: 20160808
  273. SOL-MELCORT [Concomitant]
     Active Substance: METHYLPREDNISOLONE SODIUM SUCCINATE
     Dosage: 125 MG, QD
     Route: 065
     Dates: start: 20160802, end: 20160810
  274. DOXORUBICIN HYDROCHLORIDE. [Concomitant]
     Active Substance: DOXORUBICIN HYDROCHLORIDE
     Dosage: UNK, 1X/WEEK
     Route: 065
     Dates: start: 20160506, end: 20160513
  275. DISTILLED WATER [WATER FOR INJECTION] [Concomitant]
     Dosage: 20 ML, QD
     Route: 065
     Dates: start: 20160702, end: 20160704
  276. DISTILLED WATER [WATER FOR INJECTION] [Concomitant]
     Dosage: 20 ML, QD
     Route: 065
     Dates: start: 20160710, end: 20160710
  277. DISTILLED WATER [WATER FOR INJECTION] [Concomitant]
     Dosage: UNK UNK, QD
     Route: 065
     Dates: start: 20160803, end: 20160805
  278. ALKERAN [Concomitant]
     Active Substance: MELPHALAN
     Dosage: 100 MG, QD
     Route: 065
     Dates: start: 20160610, end: 20160611
  279. MEROPEN [MEROPENEM TRIHYDRATE] [Concomitant]
     Active Substance: MEROPENEM
     Dosage: 1000 MG, QD
     Route: 065
     Dates: start: 20160614, end: 20160615
  280. LASIX [Concomitant]
     Active Substance: FUROSEMIDE
     Dosage: 10 MG, QD
     Route: 065
     Dates: start: 20160714, end: 20160714
  281. OMEPRAZOLE. [Concomitant]
     Active Substance: OMEPRAZOLE
     Dosage: 20 MG, BID
     Route: 065
     Dates: start: 20160620, end: 20160627
  282. OMEPRAZOLE. [Concomitant]
     Active Substance: OMEPRAZOLE
     Dosage: 20 MG, QID
     Route: 065
     Dates: start: 20160920, end: 20160920
  283. NEUTROGIN [Concomitant]
     Active Substance: LENOGRASTIM
     Dosage: 250 UG, QD
     Route: 065
     Dates: start: 20160829, end: 20160830
  284. NEUTROGIN [Concomitant]
     Active Substance: LENOGRASTIM
     Dosage: 250 UG, QD
     Route: 065
     Dates: start: 20160908, end: 20160908
  285. ELNEOPA NO.1 [Concomitant]
     Active Substance: AMINO ACIDS\DEXTROSE\ELECTROLYTES NOS\MINERALS\VITAMINS
     Dosage: 1500 ML, QD
     Route: 065
     Dates: start: 20160705, end: 20160706
  286. ACELIO [Concomitant]
     Active Substance: ACETAMINOPHEN
     Dosage: 1500 MG
     Route: 065
     Dates: start: 20160624, end: 20160624
  287. ALBUMIN [Concomitant]
     Active Substance: ALBUMIN HUMAN
     Dosage: 100 ML, QD
     Route: 065
     Dates: start: 20160627, end: 20160627
  288. ALBUMIN [Concomitant]
     Active Substance: ALBUMIN HUMAN
     Dosage: 50 ML, QD
     Route: 065
     Dates: start: 20160721, end: 20160722
  289. KCL [Concomitant]
     Active Substance: POTASSIUM CHLORIDE
     Dosage: 20 ML, QD
     Route: 065
     Dates: start: 20160827, end: 20160827
  290. DIAMOX SEQUELS [Concomitant]
     Active Substance: ACETAZOLAMIDE
     Dosage: 250 MG, BID
     Route: 065
     Dates: start: 20160630, end: 20160630
  291. HANP [Concomitant]
     Active Substance: CARPERITIDE
     Dosage: 6000 UG
     Route: 065
     Dates: start: 20160628, end: 20160628
  292. HANP [Concomitant]
     Active Substance: CARPERITIDE
     Dosage: 2000 UG, QD
     Route: 065
     Dates: start: 20160702, end: 20160709
  293. HUMACART R [Concomitant]
     Active Substance: INSULIN HUMAN
     Dosage: UNK, QID
     Route: 065
     Dates: start: 20160919, end: 20160919
  294. FOSCAVIR [Concomitant]
     Active Substance: FOSCARNET SODIUM
     Dosage: 4.8 G, BID
     Route: 065
     Dates: start: 20160628, end: 20160630
  295. FOSCAVIR [Concomitant]
     Active Substance: FOSCARNET SODIUM
     Dosage: 2.5 G, QOD
     Route: 065
     Dates: start: 20160914, end: 20160918
  296. DIBASIC POTASSIUM PHOSPHATE [Concomitant]
     Active Substance: POTASSIUM PHOSPHATE, DIBASIC
     Dosage: 20 ML, BID
     Route: 065
     Dates: start: 20160627, end: 20160627
  297. DIBASIC POTASSIUM PHOSPHATE [Concomitant]
     Active Substance: POTASSIUM PHOSPHATE, DIBASIC
     Dosage: 20 ML, QD
     Route: 065
     Dates: start: 20160802, end: 20160805
  298. MOVIPREP [Concomitant]
     Active Substance: ASCORBIC ACID\POLYETHYLENE GLYCOL 3350\POTASSIUM CHLORIDE\SODIUM ASCORBATE\SODIUM CHLORIDE\SODIUM SULFATE
     Dosage: UNK
     Route: 048
     Dates: start: 20160707, end: 20160707
  299. HEPAFLUSH [Concomitant]
     Active Substance: HEPARIN SODIUM
     Dosage: 10 ML, QD
     Route: 065
     Dates: start: 20160811, end: 20160816
  300. HEPAFLUSH [Concomitant]
     Active Substance: HEPARIN SODIUM
     Dosage: 10 ML, QD
     Route: 065
     Dates: start: 20160818, end: 20160914
  301. SOLACET F [Concomitant]
     Active Substance: CALCIUM CHLORIDE\POTASSIUM CHLORIDE\SODIUM ACETATE\SODIUM CHLORIDE
     Dosage: 1000 ML, QD
     Route: 065
     Dates: start: 20160713, end: 20160713
  302. EKSALB [Concomitant]
     Dosage: 15 G, QOD
     Route: 061
     Dates: start: 20160801, end: 20160803
  303. CRAVIT [Concomitant]
     Active Substance: LEVOFLOXACIN
     Dosage: UNK
     Route: 047
     Dates: start: 20160730, end: 20160730
  304. GATIFLO [Concomitant]
     Active Substance: GATIFLOXACIN
     Dosage: UNK
     Route: 047
     Dates: start: 20160821, end: 20160821
  305. HEPARINOID [Concomitant]
     Active Substance: CHONDROITIN SULFATE (BOVINE)
     Dosage: UNK
     Route: 061
     Dates: start: 20160808, end: 20160808
  306. SOSEGON [PENTAZOCINE] [Concomitant]
     Active Substance: PENTAZOCINE
     Dosage: 7.5 MG, QD
     Route: 065
     Dates: start: 20160808, end: 20160808
  307. SOSEGON [PENTAZOCINE] [Concomitant]
     Active Substance: PENTAZOCINE
     Dosage: 7.5 MG, QD
     Route: 065
     Dates: start: 20160908, end: 20160908
  308. TRANEXAMIC ACID. [Concomitant]
     Active Substance: TRANEXAMIC ACID
     Dosage: 1000 MG, BID
     Route: 065
     Dates: start: 20160906, end: 20160906
  309. MULTAMIN [ASCORBIC ACID;BIOTIN;COLECALCIFEROL;CYANOCOBALAMIN;FOLIC ACI [Concomitant]
     Dosage: UNK UNK, QD
     Route: 065
     Dates: start: 20160808, end: 20160810
  310. ELNEOPA NO.2 [Concomitant]
     Active Substance: AMINO ACIDS\DEXTROSE\ELECTROLYTES NOS\MINERALS\VITAMINS
     Dosage: 1000 ML, QD
     Route: 065
     Dates: start: 20160811, end: 20160823
  311. POLYGLOBIN [Concomitant]
     Active Substance: HUMAN IMMUNOGLOBULIN G
     Dosage: 5000 MG, QD
     Route: 065
     Dates: start: 20160815, end: 20160817
  312. TEICOPLANIN [Concomitant]
     Active Substance: TEICOPLANIN
     Dosage: 400 MG, QD
     Route: 065
     Dates: start: 20160901, end: 20160902
  313. FULCALIQ [Concomitant]
     Active Substance: AMINO ACIDS\CARBOHYDRATES\ELECTROLYTES NOS\VITAMINS
     Dosage: 1003 ML, BID
     Route: 065
     Dates: start: 20160919, end: 20160920
  314. PRECEDEX [Concomitant]
     Active Substance: DEXMEDETOMIDINE HYDROCHLORIDE
     Dosage: 200 UG, QD
     Route: 065
     Dates: start: 20160922, end: 20160922
  315. POTELIGEO [Suspect]
     Active Substance: MOGAMULIZUMAB-KPKC
     Dosage: 55 MG, QD
     Route: 041
     Dates: start: 20160427, end: 20160427
  316. CALONAL [Concomitant]
     Active Substance: ACETAMINOPHEN
     Dosage: 400 MG, 1X/WEEK
     Route: 048
     Dates: start: 20160427, end: 20160503
  317. ISOTONIC SODIUM CHLORIDE SOLUTION [Concomitant]
     Active Substance: SODIUM CHLORIDE
     Dosage: UNK UNK, BID
     Route: 065
     Dates: start: 20160607, end: 20160922
  318. SAXIZON [Concomitant]
     Active Substance: HYDROCORTISONE SODIUM SUCCINATE
     Dosage: 100 MG, QD
     Route: 065
     Dates: start: 20160915, end: 20160915
  319. SAXIZON [Concomitant]
     Active Substance: HYDROCORTISONE SODIUM SUCCINATE
     Dosage: 100 MG, QD
     Route: 065
     Dates: start: 20160917, end: 20160917
  320. SOLDEM 1 [Concomitant]
     Active Substance: DEXTROSE\SODIUM CHLORIDE\SODIUM LACTATE
     Dosage: 500 ML, QD
     Route: 065
     Dates: start: 20160904, end: 20160906
  321. HEPARIN NA LOCK [Concomitant]
     Active Substance: HEPARIN SODIUM
     Dosage: 20 ML, QD
     Route: 065
     Dates: start: 20160422, end: 20160422
  322. HEPARIN NA LOCK [Concomitant]
     Active Substance: HEPARIN SODIUM
     Dosage: 10 ML, QID
     Route: 065
     Dates: start: 20160605, end: 20160605
  323. HEPARIN NA LOCK [Concomitant]
     Active Substance: HEPARIN SODIUM
     Dosage: 10 ML, TID
     Route: 065
     Dates: start: 20160702, end: 20160702
  324. SOL-MELCORT [Concomitant]
     Active Substance: METHYLPREDNISOLONE SODIUM SUCCINATE
     Dosage: 110 MG, QD
     Route: 065
     Dates: start: 20160702, end: 20160707
  325. SOL-MELCORT [Concomitant]
     Active Substance: METHYLPREDNISOLONE SODIUM SUCCINATE
     Dosage: 110 MG, QD
     Route: 065
     Dates: start: 20160716, end: 20160720
  326. SOL-MELCORT [Concomitant]
     Active Substance: METHYLPREDNISOLONE SODIUM SUCCINATE
     Dosage: 90 MG, QD
     Route: 065
     Dates: start: 20160726, end: 20160730
  327. SOL-MELCORT [Concomitant]
     Active Substance: METHYLPREDNISOLONE SODIUM SUCCINATE
     Dosage: 125 MG, BID
     Route: 065
     Dates: start: 20160920, end: 20160920
  328. DAIPHEN [Concomitant]
     Active Substance: SULFAMETHOXAZOLE\TRIMETHOPRIM
     Dosage: 1 DF, QD
     Route: 048
     Dates: start: 20160510, end: 20160601
  329. ACICLOVIR [Concomitant]
     Active Substance: ACYCLOVIR
     Dosage: 200 MG, QD
     Route: 048
     Dates: start: 20160510, end: 20160604
  330. FILGRASTIM BS [FILGRASTIM BIOSIMILAR 1] [Concomitant]
     Dosage: 75 UG, QD
     Route: 065
     Dates: start: 20160507, end: 20160511
  331. CYMERIN [Concomitant]
     Active Substance: RANIMUSTINE
     Dosage: 85 MG, QD
     Route: 065
     Dates: start: 20160513, end: 20160513
  332. GLUCOSE [Concomitant]
     Active Substance: DEXTROSE
     Dosage: UNK UNK, QD
     Route: 065
     Dates: start: 20160913, end: 20160921
  333. URSODEOXYCHOLIC ACID [Concomitant]
     Active Substance: URSODIOL
     Dosage: 200 MG, TID
     Route: 048
     Dates: start: 20160605, end: 20160622
  334. URSODEOXYCHOLIC ACID [Concomitant]
     Active Substance: URSODIOL
     Dosage: 200 MG, 6X/DAY
     Route: 048
     Dates: start: 20160906, end: 20160906
  335. FLUDARA [Concomitant]
     Active Substance: FLUDARABINE PHOSPHATE
     Dosage: 35 MG, QD
     Route: 065
     Dates: start: 20160607, end: 20160611
  336. POLARAMINE [Concomitant]
     Active Substance: DEXCHLORPHENIRAMINE MALEATE
     Dosage: 5 MG, QOD
     Route: 065
     Dates: start: 20160708, end: 20160710
  337. MEROPENEM [MEROPENEM TRIHYDRATE] [Concomitant]
     Active Substance: MEROPENEM
     Dosage: 1000 MG, 6X/DAY
     Route: 065
     Dates: start: 20160629, end: 20160630
  338. LASIX [Concomitant]
     Active Substance: FUROSEMIDE
     Dosage: 20 MG, QD
     Route: 065
     Dates: start: 20160828, end: 20160828
  339. DEXART [Concomitant]
     Active Substance: DEXAMETHASONE SODIUM PHOSPHATE
     Dosage: UNK
     Route: 065
     Dates: start: 20160610, end: 20160610
  340. OMEPRAZOLE. [Concomitant]
     Active Substance: OMEPRAZOLE
     Dosage: 20 MG, TID
     Route: 065
     Dates: start: 20160628, end: 20160628
  341. OMEPRAZOLE. [Concomitant]
     Active Substance: OMEPRAZOLE
     Dosage: 20 MG, TID
     Route: 065
     Dates: start: 20160701, end: 20160701
  342. NEUTROGIN [Concomitant]
     Active Substance: LENOGRASTIM
     Dosage: 250 UG, QD
     Route: 065
     Dates: start: 20160618, end: 20160626
  343. NEUTROGIN [Concomitant]
     Active Substance: LENOGRASTIM
     Dosage: 250 UG, QD
     Route: 065
     Dates: start: 20160820, end: 20160821
  344. VICCLOX [ACICLOVIR] [Concomitant]
     Active Substance: ACYCLOVIR
     Dosage: 125 MG, QD
     Route: 065
     Dates: start: 20160810, end: 20160810
  345. ELNEOPA NO.1 [Concomitant]
     Active Substance: AMINO ACIDS\DEXTROSE\ELECTROLYTES NOS\MINERALS\VITAMINS
     Dosage: 1000 ML, QD
     Route: 065
     Dates: start: 20160702, end: 20160704
  346. ELNEOPA NO.1 [Concomitant]
     Active Substance: AMINO ACIDS\DEXTROSE\ELECTROLYTES NOS\MINERALS\VITAMINS
     Dosage: 1500 ML, QD
     Route: 065
     Dates: start: 20160717, end: 20160727
  347. ACELIO [Concomitant]
     Active Substance: ACETAMINOPHEN
     Dosage: 1000 MG, BID
     Route: 065
     Dates: start: 20160625, end: 20160625
  348. ACELIO [Concomitant]
     Active Substance: ACETAMINOPHEN
     Dosage: 1000 MG, QD
     Route: 065
     Dates: start: 20160717, end: 20160717
  349. ACELIO [Concomitant]
     Active Substance: ACETAMINOPHEN
     Dosage: 1500 MG
     Route: 065
     Dates: start: 20160916, end: 20160916
  350. ALBUMIN [Concomitant]
     Active Substance: ALBUMIN HUMAN
     Dosage: 100 ML, QD
     Route: 065
     Dates: start: 20160723, end: 20160723
  351. ALBUMIN [Concomitant]
     Active Substance: ALBUMIN HUMAN
     Dosage: 100 ML, QD
     Route: 065
     Dates: start: 20160730, end: 20160730
  352. ALBUMIN [Concomitant]
     Active Substance: ALBUMIN HUMAN
     Dosage: 100 ML, QD
     Route: 065
     Dates: start: 20160808, end: 20160808
  353. FOSCAVIR [Concomitant]
     Active Substance: FOSCARNET SODIUM
     Dosage: 4.8 G, QD
     Route: 065
     Dates: start: 20160627, end: 20160627
  354. FOSCAVIR [Concomitant]
     Active Substance: FOSCARNET SODIUM
     Dosage: 2.4 G, QD
     Route: 065
     Dates: start: 20160705, end: 20160730
  355. FOSCAVIR [Concomitant]
     Active Substance: FOSCARNET SODIUM
     Dosage: 2.5 G, BID
     Route: 065
     Dates: start: 20160920, end: 20160920
  356. THYMOGLOBULINE [Concomitant]
     Active Substance: LAPINE T-LYMPHOCYTE IMMUNE GLOBULIN
     Dosage: 57 MG, BID
     Route: 065
     Dates: start: 20160629, end: 20160629
  357. THYMOGLOBULINE [Concomitant]
     Active Substance: LAPINE T-LYMPHOCYTE IMMUNE GLOBULIN
     Dosage: 55 MG, QD
     Route: 065
     Dates: start: 20160713, end: 20160715
  358. THYMOGLOBULINE [Concomitant]
     Active Substance: LAPINE T-LYMPHOCYTE IMMUNE GLOBULIN
     Dosage: 55 MG, QD
     Route: 065
     Dates: start: 20160721, end: 20160722
  359. THYMOGLOBULINE [Concomitant]
     Active Substance: LAPINE T-LYMPHOCYTE IMMUNE GLOBULIN
     Dosage: 55 MG, QD
     Route: 065
     Dates: start: 20160803, end: 20160804
  360. NOVORAPID [Concomitant]
     Active Substance: INSULIN ASPART
     Dosage: UNK UNK, TID
     Route: 065
     Dates: start: 20160906, end: 20160906
  361. MORPHINE HYDROCHLORIDE TRIHYDRATE [Concomitant]
     Active Substance: MORPHINE HYDROCHLORIDE
     Dosage: 1 ML, QD
     Route: 065
     Dates: start: 20160710, end: 20160710
  362. SANDOSTATIN [Concomitant]
     Active Substance: OCTREOTIDE ACETATE
     Dosage: 300 UG, QD
     Route: 065
     Dates: start: 20160711, end: 20160809
  363. SOLACET F [Concomitant]
     Active Substance: CALCIUM CHLORIDE\POTASSIUM CHLORIDE\SODIUM ACETATE\SODIUM CHLORIDE
     Dosage: 500 ML, QD
     Route: 065
     Dates: start: 20160708, end: 20160710
  364. SOLACET F [Concomitant]
     Active Substance: CALCIUM CHLORIDE\POTASSIUM CHLORIDE\SODIUM ACETATE\SODIUM CHLORIDE
     Dosage: 500 ML, QOD
     Route: 065
     Dates: start: 20160919, end: 20160921
  365. LOCOID [Concomitant]
     Active Substance: HYDROCORTISONE BUTYRATE
     Dosage: 2 G
     Route: 061
     Dates: start: 20160824, end: 20160824
  366. MAXIPIME [Concomitant]
     Active Substance: CEFEPIME HYDROCHLORIDE
     Dosage: 1000 MG, BID
     Route: 065
     Dates: start: 20160728, end: 20160807
  367. TRANEXAMIC ACID. [Concomitant]
     Active Substance: TRANEXAMIC ACID
     Dosage: 1000 MG, QD
     Route: 065
     Dates: start: 20160904, end: 20160905
  368. ELNEOPA NO.2 [Concomitant]
     Active Substance: AMINO ACIDS\DEXTROSE\ELECTROLYTES NOS\MINERALS\VITAMINS
     Dosage: 1500 ML, QD
     Route: 065
     Dates: start: 20160907, end: 20160920
  369. ATARAX-P [HYDROXYZINE HYDROCHLORIDE] [Concomitant]
     Dosage: 25 MG
     Route: 065
     Dates: start: 20160826, end: 20160826
  370. NORADRENALINE [NOREPINEPHRINE] [Concomitant]
     Active Substance: NOREPINEPHRINE
     Dosage: 2 MG, QID
     Route: 065
     Dates: start: 20160920, end: 20160921
  371. CALONAL [Concomitant]
     Active Substance: ACETAMINOPHEN
     Dosage: 400 MG, QD
     Route: 048
     Dates: start: 20160617, end: 20160617
  372. ISOTONIC SODIUM CHLORIDE SOLUTION [Concomitant]
     Active Substance: SODIUM CHLORIDE
     Dosage: 100 ML, QD
     Route: 065
     Dates: start: 20160504, end: 20160504
  373. SAXIZON [Concomitant]
     Active Substance: HYDROCORTISONE SODIUM SUCCINATE
     Dosage: 100 MG, QD
     Route: 065
     Dates: start: 20160713, end: 20160715
  374. SAXIZON [Concomitant]
     Active Substance: HYDROCORTISONE SODIUM SUCCINATE
     Dosage: 100 MG, QD
     Route: 065
     Dates: start: 20160727, end: 20160728
  375. SAXIZON [Concomitant]
     Active Substance: HYDROCORTISONE SODIUM SUCCINATE
     Dosage: 100 MG, QD
     Route: 065
     Dates: start: 20160809, end: 20160809
  376. SAXIZON [Concomitant]
     Active Substance: HYDROCORTISONE SODIUM SUCCINATE
     Dosage: 100 MG, QD
     Route: 065
     Dates: start: 20160813, end: 20160813
  377. SOLDEM 1 [Concomitant]
     Active Substance: DEXTROSE\SODIUM CHLORIDE\SODIUM LACTATE
     Dosage: 1000 ML, QD
     Route: 065
     Dates: start: 20160711, end: 20160713
  378. SOLDEM 1 [Concomitant]
     Active Substance: DEXTROSE\SODIUM CHLORIDE\SODIUM LACTATE
     Dosage: 500 ML, QD
     Route: 065
     Dates: start: 20160921, end: 20160921
  379. HEPARIN NA LOCK [Concomitant]
     Active Substance: HEPARIN SODIUM
     Dosage: 10 ML, QID
     Route: 065
     Dates: start: 20160513, end: 20160514
  380. HEPARIN NA LOCK [Concomitant]
     Active Substance: HEPARIN SODIUM
     Dosage: 10 ML, TID
     Route: 065
     Dates: start: 20160529, end: 20160604
  381. HEPARIN NA LOCK [Concomitant]
     Active Substance: HEPARIN SODIUM
     Dosage: 10 ML, QID
     Route: 065
     Dates: start: 20160615, end: 20160616
  382. HEPARIN NA LOCK [Concomitant]
     Active Substance: HEPARIN SODIUM
     Dosage: UNK, 5X/DAY
     Route: 065
     Dates: start: 20160703, end: 20160703
  383. HEPARIN NA LOCK [Concomitant]
     Active Substance: HEPARIN SODIUM
     Dosage: UNK
     Route: 065
     Dates: start: 20160711, end: 20160722
  384. HEPARIN NA LOCK [Concomitant]
     Active Substance: HEPARIN SODIUM
     Dosage: 10 ML, BID
     Route: 065
     Dates: start: 20160905, end: 20160905
  385. HEPARIN NA LOCK [Concomitant]
     Active Substance: HEPARIN SODIUM
     Dosage: UNK UNK, QD
     Route: 065
     Dates: start: 20160914, end: 20160915
  386. SOL-MELCORT [Concomitant]
     Active Substance: METHYLPREDNISOLONE SODIUM SUCCINATE
     Dosage: 60 MG, BID
     Route: 065
     Dates: start: 20160627, end: 20160627
  387. SOL-MELCORT [Concomitant]
     Active Substance: METHYLPREDNISOLONE SODIUM SUCCINATE
     Dosage: 125 MG, QD
     Route: 065
     Dates: start: 20160628, end: 20160628
  388. SOL-MELCORT [Concomitant]
     Active Substance: METHYLPREDNISOLONE SODIUM SUCCINATE
     Dosage: 100 MG, QD
     Route: 065
     Dates: start: 20160721, end: 20160725
  389. ENDOXAN [CYCLOPHOSPHAMIDE MONOHYDRATE] [Concomitant]
     Active Substance: CYCLOPHOSPHAMIDE
     Dosage: 500 MG
     Route: 065
     Dates: start: 20160506, end: 20160506
  390. ONCOVIN [Concomitant]
     Active Substance: VINCRISTINE SULFATE
     Dosage: 1.4 MG, QD
     Route: 065
     Dates: start: 20160506, end: 20160506
  391. GLUCOSE [Concomitant]
     Active Substance: DEXTROSE
     Dosage: 250 ML, QD
     Route: 065
     Dates: start: 20160513, end: 20160513
  392. GLUCOSE [Concomitant]
     Active Substance: DEXTROSE
     Dosage: 100 ML, QD
     Route: 065
     Dates: start: 20160623, end: 20160627
  393. GLUCOSE [Concomitant]
     Active Substance: DEXTROSE
     Dosage: 100 ML, BID
     Route: 065
     Dates: start: 20160628, end: 20160701
  394. MAGMITT [Concomitant]
     Active Substance: MAGNESIUM OXIDE
     Dosage: 500 MG, PRN
     Route: 048
     Dates: start: 20160608
  395. DISTILLED WATER [WATER FOR INJECTION] [Concomitant]
     Dosage: UNK UNK, QD
     Route: 065
     Dates: start: 20160810, end: 20160831
  396. DISTILLED WATER [WATER FOR INJECTION] [Concomitant]
     Dosage: 40 ML, QD
     Route: 065
     Dates: start: 20160905, end: 20160905
  397. POLARAMINE [Concomitant]
     Active Substance: DEXCHLORPHENIRAMINE MALEATE
     Dosage: UNK UNK, QD
     Route: 065
     Dates: start: 20160724, end: 20160725
  398. MEROPENEM [MEROPENEM TRIHYDRATE] [Concomitant]
     Active Substance: MEROPENEM
     Dosage: 1000 MG, BID
     Route: 065
     Dates: start: 20160615, end: 20160615
  399. LASIX [Concomitant]
     Active Substance: FUROSEMIDE
     Dosage: 20 MG, QD
     Route: 065
     Dates: start: 20160822, end: 20160822
  400. LASIX [Concomitant]
     Active Substance: FUROSEMIDE
     Dosage: 20 MG, QD
     Route: 065
     Dates: start: 20160902, end: 20160903
  401. NEUTROGIN [Concomitant]
     Active Substance: LENOGRASTIM
     Dosage: 250 UG, QD
     Route: 065
     Dates: start: 20160904, end: 20160906
  402. ALBUMIN [Concomitant]
     Active Substance: ALBUMIN HUMAN
     Dosage: 100 ML, QD
     Route: 065
     Dates: start: 20160710, end: 20160710
  403. KCL [Concomitant]
     Active Substance: POTASSIUM CHLORIDE
     Dosage: UNK
     Route: 065
     Dates: start: 20160627, end: 20160708
  404. THYMOGLOBULINE [Concomitant]
     Active Substance: LAPINE T-LYMPHOCYTE IMMUNE GLOBULIN
     Dosage: 57 MG, QD
     Route: 065
     Dates: start: 20160628, end: 20160628
  405. THYMOGLOBULINE [Concomitant]
     Active Substance: LAPINE T-LYMPHOCYTE IMMUNE GLOBULIN
     Dosage: 110 MG, QD
     Route: 065
     Dates: start: 20160813, end: 20160813
  406. TARIVID [OFLOXACIN] [Concomitant]
     Dosage: 3.5 G
     Route: 047
     Dates: start: 20160802, end: 20160802
  407. FLUMETHOLON [Concomitant]
     Active Substance: FLUOROMETHOLONE
     Dosage: UNK
     Route: 047
     Dates: start: 20160802, end: 20160802
  408. LOXOPROFEN SODIUM HYDRATE [Concomitant]
     Active Substance: LOXOPROFEN SODIUM DIHYDRATE
     Dosage: UNK
     Dates: start: 20160728, end: 20160728
  409. ADONA [CARBAZOCHROME SODIUM SULFONATE] [Concomitant]
     Active Substance: CARBAZOCHROME SODIUM SULFONATE
     Dosage: 100 MG, QD
     Route: 065
     Dates: start: 20160729, end: 20160905
  410. ADONA [CARBAZOCHROME SODIUM SULFONATE] [Concomitant]
     Active Substance: CARBAZOCHROME SODIUM SULFONATE
     Dosage: 100 MG, QD
     Route: 065
     Dates: start: 20160907, end: 20160920
  411. SOSEGON [PENTAZOCINE] [Concomitant]
     Active Substance: PENTAZOCINE
     Dosage: 7.5 MG, QD
     Route: 065
     Dates: start: 20160729, end: 20160729
  412. NICARDIPINE HYDROCHLORIDE. [Concomitant]
     Active Substance: NICARDIPINE HYDROCHLORIDE
     Dosage: 50 MG, QD
     Route: 065
     Dates: start: 20160817, end: 20160817
  413. NICARDIPINE HYDROCHLORIDE. [Concomitant]
     Active Substance: NICARDIPINE HYDROCHLORIDE
     Dosage: 50 MG, BID
     Route: 065
     Dates: start: 20160902, end: 20160902
  414. FINIBAX [Concomitant]
     Active Substance: DORIPENEM MONOHYDRATE
     Dosage: UNK, 5X/DAY
     Route: 065
     Dates: start: 20160920, end: 20160920
  415. MUCOSTA [Concomitant]
     Active Substance: REBAMIPIDE
     Dosage: UNK, QOD
     Route: 047
     Dates: start: 20160908, end: 20160912
  416. LACTEC [Concomitant]
     Active Substance: CALCIUM CHLORIDE ANHYDROUS\POTASSIUM CHLORIDE\SODIUM CHLORIDE\SODIUM LACTATE
     Dosage: 500 ML
     Route: 065
     Dates: start: 20160908, end: 20160908

REACTIONS (3)
  - Acute graft versus host disease [Recovering/Resolving]
  - Pulmonary mycosis [Fatal]
  - Thrombotic microangiopathy [Recovering/Resolving]

NARRATIVE: CASE EVENT DATE: 20160709
